FAERS Safety Report 19535661 (Version 1)
Quarter: 2021Q3

REPORT INFORMATION
  Report Type: Spontaneous
  Country: US (occurrence: US)
  Receive Date: 20210713
  Receipt Date: 20210713
  Transmission Date: 20211014
  Serious: Yes (Hospitalization)
  Sender: FDA-Public Use
  Company Number: None

PATIENT
  Age: 47 Year
  Weight: 94.5 kg

DRUGS (15)
  1. VITAMIN D2 [Concomitant]
     Active Substance: ERGOCALCIFEROL
  2. AMLODIPINE [Concomitant]
     Active Substance: AMLODIPINE BESYLATE
  3. ATORVASTATIN [Concomitant]
     Active Substance: ATORVASTATIN
  4. ESTRADIOL. [Concomitant]
     Active Substance: ESTRADIOL
  5. GABAPENTIN. [Concomitant]
     Active Substance: GABAPENTIN
  6. VYVANSE [Concomitant]
     Active Substance: LISDEXAMFETAMINE DIMESYLATE
  7. JANUMET XR [Concomitant]
     Active Substance: METFORMIN HYDROCHLORIDE\SITAGLIPTIN PHOSPHATE
  8. ADVAIR HFA [Concomitant]
     Active Substance: FLUTICASONE PROPIONATE\SALMETEROL XINAFOATE
  9. ASPIRIN 81MG [Concomitant]
     Active Substance: ASPIRIN
  10. HYDROCHLOROTHIAZIDE. [Concomitant]
     Active Substance: HYDROCHLOROTHIAZIDE
  11. TYLENOL [Concomitant]
     Active Substance: ACETAMINOPHEN
  12. JARDIANCE [Suspect]
     Active Substance: EMPAGLIFLOZIN
     Indication: TYPE 2 DIABETES MELLITUS
     Dosage: ?          QUANTITY:1 TABLET(S);?
     Route: 048
     Dates: start: 20210623, end: 20210707
  13. LOSARTIN [Concomitant]
     Active Substance: LOSARTAN
  14. GUANFACINE. [Concomitant]
     Active Substance: GUANFACINE
  15. GLYBURIDE. [Concomitant]
     Active Substance: GLYBURIDE

REACTIONS (4)
  - Diabetic ketoacidosis [None]
  - Hyponatraemia [None]
  - Hypophosphataemia [None]
  - Hypokalaemia [None]

NARRATIVE: CASE EVENT DATE: 20210707
